FAERS Safety Report 6940558-1 (Version None)
Quarter: 2010Q3

REPORT INFORMATION
  Report Type: 
  Country: None (occurrence: None)
  Receive Date: 20100825
  Receipt Date: 20100602
  Transmission Date: 20110219
  Serious: Yes (Hospitalization, Other)
  Sender: FDA-Public Use
  Company Number: US-BAYER-201013716NA

PATIENT
  Age: 19 Year
  Sex: Female
  Weight: 54 kg

DRUGS (2)
  1. DROSPIRENONE AND EHTINYL ESTRADIOL [Suspect]
     Indication: ACNE
     Route: 048
     Dates: start: 20090107, end: 20091001
  2. ZOLOFT [Concomitant]
     Indication: DEPRESSION
     Route: 065

REACTIONS (1)
  - GALLBLADDER INJURY [None]
